FAERS Safety Report 5454793-5 (Version None)
Quarter: 2007Q3

REPORT INFORMATION
  Report Type: 
  Country: None (occurrence: None)
  Receive Date: 20070917
  Receipt Date: 20070911
  Transmission Date: 20080115
  Serious: Yes (Other)
  Sender: FDA-Public Use
  Company Number: US-BOEHRINGER INGELHEIM PHARMACEUTICALS, INC.-2007-BP-21022PF

PATIENT
  Sex: Female
  Weight: 50 kg

DRUGS (4)
  1. SPIRIVA [Suspect]
     Dates: start: 20070901, end: 20070909
  2. CHANTIX [Suspect]
     Indication: SMOKING CESSATION THERAPY
     Dates: start: 20070905
  3. CALCIUM [Concomitant]
     Indication: OSTEOPOROSIS
  4. TRIAMTERENE AND HYDROCHLOROTHIAZIDE [Concomitant]
     Indication: BLOOD PRESSURE DIASTOLIC ABNORMAL

REACTIONS (12)
  - ANOREXIA [None]
  - CHEST DISCOMFORT [None]
  - CONSTIPATION [None]
  - DRUG INTERACTION [None]
  - DYSPNOEA [None]
  - EATING DISORDER [None]
  - FEAR [None]
  - FEELING ABNORMAL [None]
  - FEELING JITTERY [None]
  - NAUSEA [None]
  - SALIVARY HYPERSECRETION [None]
  - SHOULDER OPERATION [None]
